FAERS Safety Report 8530844-6 (Version None)
Quarter: 2012Q2

REPORT INFORMATION
  Report Type: 
  Country: None (occurrence: None)
  Receive Date: 20120412
  Receipt Date: 20120229
  Transmission Date: 20120825
  Serious: No
  Sender: FDA-Public Use
  Company Number: 2012S1000014

PATIENT
  Age: 37 Year
  Sex: Male

DRUGS (6)
  1. KRYSTEXXA [Suspect]
     Indication: GOUT
     Dosage: 8 MG;QOW;IV
     Dates: start: 20120105, end: 20120229
  2. PREDNISONE [Concomitant]
  3. ANTIHISTAMINES [Concomitant]
  4. CORTICOSTEROIDS [Concomitant]
  5. FLONASE [Concomitant]
  6. ANALGESICS [Concomitant]

REACTIONS (1)
  - THERAPEUTIC RESPONSE DECREASED [None]
